FAERS Safety Report 11746226 (Version 1)
Quarter: 2015Q4

REPORT INFORMATION
  Report Type: Spontaneous
  Country: US (occurrence: US)
  Receive Date: 20151117
  Receipt Date: 20151117
  Transmission Date: 20160304
  Serious: Yes (Other)
  Sender: FDA-Public Use
  Company Number: US-LPDUSPRD-20150791

PATIENT
  Age: 46 Year
  Sex: Female

DRUGS (18)
  1. HYDROMPRPHONE HCL [Concomitant]
     Dosage: 4 MG Q2H PRN
     Route: 048
  2. METFORMIN HCL [Concomitant]
     Active Substance: METFORMIN HYDROCHLORIDE
     Dosage: 1000 MG, TWICE DAILY
     Route: 048
  3. COLACE [Concomitant]
     Active Substance: DOCUSATE SODIUM
     Dosage: 100 MG, 1 CAP TWICE DAILY
     Route: 048
     Dates: start: 20150824
  4. METHADONE HCL [Concomitant]
     Active Substance: METHADONE HYDROCHLORIDE
     Dosage: 10  MG, Q12H
     Route: 048
  5. ALOXI [Concomitant]
     Active Substance: PALONOSETRON HYDROCHLORIDE
     Dosage: 0.25MG/5ML
     Route: 042
     Dates: start: 20150730
  6. CARBOPLATIN. [Concomitant]
     Active Substance: CARBOPLATIN
     Dosage: 150MG/15ML
     Route: 042
     Dates: start: 20150730
  7. GLIPIZIDE. [Concomitant]
     Active Substance: GLIPIZIDE
     Dosage: 5 MG, TWICE DAILY
     Route: 048
  8. PROCHLORPERAZINE MALEATE. [Concomitant]
     Active Substance: PROCHLORPERAZINE MALEATE
     Dosage: 10 MG, Q6H PRN
     Route: 048
     Dates: start: 20150812
  9. FUROSEMIDE. [Concomitant]
     Active Substance: FUROSEMIDE
     Route: 048
  10. FERROUS SULFATE [Concomitant]
     Active Substance: FERROUS SULFATE\FERROUS SULFATE, DRIED
     Dosage: 325 (65 FE) MG, 2X DAILY
     Route: 048
     Dates: start: 20150814
  11. MUGARD MOUTH/THROAT LIQUID [Concomitant]
     Dosage: AS DIRECTED
     Route: 048
     Dates: start: 20150814
  12. POTASSIUM CHLORIDE CRYS ER [Concomitant]
     Dosage: 20 MEQ, Q12H
     Route: 048
  13. PRILOSEC OTC [Concomitant]
     Active Substance: OMEPRAZOLE MAGNESIUM
     Dosage: 20 MG, DAILY
     Route: 048
  14. ESTRADIOL. [Concomitant]
     Active Substance: ESTRADIOL
     Dosage: 1 MG , DAILY AS DIRECTED
     Route: 048
  15. FLUOROURACIL. [Concomitant]
     Active Substance: FLUOROURACIL
     Dosage: 1GM/20ML
     Route: 042
     Dates: start: 20150730
  16. INJECTAFER [Suspect]
     Active Substance: FERRIC CARBOXYMALTOSE
     Dosage: 750 MG IN 100 ML NS
     Route: 042
     Dates: start: 20150904, end: 20150904
  17. SPIRONOLACTONE. [Concomitant]
     Active Substance: SPIRONOLACTONE
     Dosage: 25 MG, TWICE DAILY
     Route: 048
  18. GABAPENTIN. [Concomitant]
     Active Substance: GABAPENTIN
     Dosage: 400 MG, 3 TABS TID
     Route: 048

REACTIONS (2)
  - Hot flush [Unknown]
  - Dizziness [Unknown]

NARRATIVE: CASE EVENT DATE: 20150904
